FAERS Safety Report 4365909-6 (Version None)
Quarter: 2004Q2

REPORT INFORMATION
  Report Type: 
  Country: None (occurrence: None)
  Receive Date: 20040527
  Receipt Date: 20030714
  Transmission Date: 20050107
  Serious: No
  Sender: FDA-Public Use
  Company Number: US-BRISTOL-MYERS SQUIBB COMPANY-12326260

PATIENT
  Age: 67 Year
  Sex: Female
  Weight: 54 kg

DRUGS (5)
  1. POTASSIUM CHLORIDE [Suspect]
     Indication: MINERAL SUPPLEMENTATION
     Dosage: DURATION OF THERAPY:  OVER 1 YEAR.
     Route: 048
  2. NEXIUM [Concomitant]
  3. LASIX [Concomitant]
  4. PROPULSID [Concomitant]
  5. CIPRO [Concomitant]
     Indication: BACTERIAL INFECTION

REACTIONS (2)
  - BLOOD POTASSIUM DECREASED [None]
  - STOOL ANALYSIS ABNORMAL [None]
